FAERS Safety Report 5114814-6 (Version None)
Quarter: 2006Q3

REPORT INFORMATION
  Report Type: 
  Country: None (occurrence: None)
  Receive Date: 20060926
  Receipt Date: 20060911
  Transmission Date: 20061208
  Serious: Yes (Hospitalization)
  Sender: FDA-Public Use
  Company Number: 2006PK01872

PATIENT
  Age: 24325 Day
  Sex: Female
  Weight: 110 kg

DRUGS (1)
  1. FASLODEX [Suspect]
     Indication: BREAST CANCER
     Route: 030
     Dates: start: 20060421

REACTIONS (2)
  - MALIGNANT BREAST LUMP REMOVAL [None]
  - SURGICAL PROCEDURE REPEATED [None]
